FAERS Safety Report 17899939 (Version 1)
Quarter: 2020Q2

REPORT INFORMATION
  Report Type: Spontaneous
  Country: US (occurrence: US)
  Receive Date: 20200615
  Receipt Date: 20200615
  Transmission Date: 20200714
  Serious: Yes (Hospitalization)
  Sender: FDA-Public Use
  Company Number: None

PATIENT
  Age: 68 Year
  Sex: Male
  Weight: 135.9 kg

DRUGS (15)
  1. MYRBETRIQ [Concomitant]
     Active Substance: MIRABEGRON
  2. ESCITALOPRAM [Concomitant]
     Active Substance: ESCITALOPRAM OXALATE
  3. NIVOLUMAB, 240MG [Suspect]
     Active Substance: NIVOLUMAB
     Indication: GLIOBLASTOMA MULTIFORME
     Route: 042
     Dates: start: 20191111, end: 20200519
  4. KEPPRA [Concomitant]
     Active Substance: LEVETIRACETAM
  5. DEXAMETHASONE. [Concomitant]
     Active Substance: DEXAMETHASONE
  6. LAMOTRIGINE. [Concomitant]
     Active Substance: LAMOTRIGINE
  7. QUETIAPINE. [Concomitant]
     Active Substance: QUETIAPINE
  8. ALLOPURINOL. [Concomitant]
     Active Substance: ALLOPURINOL
  9. BEVACIZUMAB 10MG/KG [Suspect]
     Active Substance: BEVACIZUMAB
     Indication: GLIOBLASTOMA MULTIFORME
     Route: 041
     Dates: start: 20191111, end: 20200519
  10. TYLENOL [Concomitant]
     Active Substance: ACETAMINOPHEN
  11. DOXYCYCLINE HYCLATE. [Concomitant]
     Active Substance: DOXYCYCLINE HYCLATE
  12. ENALAPRIL [Concomitant]
     Active Substance: ENALAPRIL
  13. PEPCID [Concomitant]
     Active Substance: FAMOTIDINE
  14. LEVOTHYROXINE. [Concomitant]
     Active Substance: LEVOTHYROXINE
  15. CICLOPIROX. [Concomitant]
     Active Substance: CICLOPIROX

REACTIONS (8)
  - Asthenia [None]
  - Gait inability [None]
  - Confusional state [None]
  - Disease progression [None]
  - Somnolence [None]
  - Lethargy [None]
  - Slow speech [None]
  - Encephalopathy [None]

NARRATIVE: CASE EVENT DATE: 20200601
